FAERS Safety Report 5280391-2 (Version None)
Quarter: 2007Q2

REPORT INFORMATION
  Report Type: 
  Country: None (occurrence: None)
  Receive Date: 20070322
  Receipt Date: 20070309
  Transmission Date: 20071010
  Serious: Yes (Hospitalization)
  Sender: FDA-Public Use
  Company Number: 232372

PATIENT
  Age: 57 Year
  Sex: Female

DRUGS (5)
  1. RITUXAN [Suspect]
     Indication: B-CELL LYMPHOMA
     Dosage: 560 MG, INTRAVENOUS
     Route: 042
     Dates: start: 20061017, end: 20061031
  2. CONCOMITANT DRUG (GENERIC COMPONENT(S) NOT KNOWN) [Concomitant]
  3. TRAMADOL HCL [Concomitant]
  4. TRAMAL (TRAMADOL HCL) [Concomitant]
  5. CONCOMITANT DRUG (GENERIC COMPONENT(S) NOT KNOWN) [Concomitant]

REACTIONS (4)
  - CONDITION AGGRAVATED [None]
  - FLANK PAIN [None]
  - NAUSEA [None]
  - VERTIGO [None]
